FAERS Safety Report 9283677 (Version 2)
Quarter: 2013Q2

REPORT INFORMATION
  Report Type: Spontaneous
  Country: US (occurrence: None)
  Receive Date: 20130506
  Receipt Date: 20130516
  Transmission Date: 20140414
  Serious: Yes (Hospitalization, Other)
  Sender: FDA-Public Use
  Company Number: AUR-APL-2013-03609

PATIENT
  Age: 51 Year
  Sex: Female

DRUGS (2)
  1. SERTRALINE [Suspect]
     Indication: DEPRESSION
     Dosage: 1 IN 1 D
     Route: 048
     Dates: start: 20120701, end: 20120712
  2. MIRTAZAPINE [Suspect]
     Indication: PRODUCT USED FOR UNKNOWN INDICATION
     Dosage: 7.5-15 MG DAILY, 1 DOSAGE FORM
     Route: 048
     Dates: start: 20120621, end: 20120630

REACTIONS (2)
  - Gamma-glutamyltransferase increased [None]
  - Restlessness [None]
